FAERS Safety Report 7965090-8 (Version None)
Quarter: 2011Q4

REPORT INFORMATION
  Report Type: 
  Country: None (occurrence: None)
  Receive Date: 20111208
  Receipt Date: 20111006
  Transmission Date: 20120403
  Serious: Yes (Other)
  Sender: FDA-Public Use
  Company Number: US-ROCHE-1020094

PATIENT
  Sex: Female

DRUGS (6)
  1. BOCEPREVIR [Suspect]
     Indication: HEPATITIS C
     Dates: start: 20110910
  2. PEGINTERFERON ALFA-2A [Suspect]
     Indication: HEPATITIS C
     Dates: start: 20110820
  3. NEURONTIN [Concomitant]
  4. COPEGUS [Suspect]
     Indication: HEPATITIS C
     Dates: start: 20110820
  5. ZOLOFT [Concomitant]
  6. MILK OF MAGNESIA TAB [Concomitant]

REACTIONS (4)
  - JOINT SWELLING [None]
  - SWELLING FACE [None]
  - ABDOMINAL DISTENSION [None]
  - WEIGHT INCREASED [None]
